FAERS Safety Report 5034487-0 (Version None)
Quarter: 2006Q2

REPORT INFORMATION
  Report Type: 
  Country: None (occurrence: None)
  Receive Date: 20060621
  Receipt Date: 20060612
  Transmission Date: 20061013
  Serious: Yes (Death)
  Sender: FDA-Public Use
  Company Number: 2006-06-0185

PATIENT
  Age: 68 Year
  Sex: Male
  Weight: 60 kg

DRUGS (6)
  1. PEG-INTRON [Suspect]
     Indication: HEPATITIS C
     Dosage: 80 MCG QW SUBCUTANEOUS
     Route: 058
     Dates: start: 20060203, end: 20060505
  2. REBETOL [Suspect]
     Indication: HEPATITIS C
     Dosage: 600-400* MG ORAL
     Route: 048
     Dates: start: 20060203, end: 20060509
  3. URSO [Concomitant]
  4. DAI-KENCHU-TO [Concomitant]
  5. CLOSTRIDIUM BUTYRICUM [Concomitant]
  6. TSUMARA JUZEN-TAIHO-TO [Concomitant]

REACTIONS (5)
  - ANGIOPATHY [None]
  - CARDIO-RESPIRATORY ARREST [None]
  - CEREBRAL HAEMORRHAGE [None]
  - LOSS OF CONSCIOUSNESS [None]
  - PANCYTOPENIA [None]
